FAERS Safety Report 6763248-7 (Version None)
Quarter: 2010Q2

REPORT INFORMATION
  Report Type: 
  Country: None (occurrence: None)
  Receive Date: 20100608
  Receipt Date: 20100608
  Transmission Date: 20101027
  Serious: Yes (Hospitalization)
  Sender: FDA-Public Use
  Company Number: None

PATIENT
  Age: 36 Year
  Sex: Male
  Weight: 105.2345 kg

DRUGS (2)
  1. AMITRIPTYLINE HCL [Suspect]
     Indication: MUSCULOSKELETAL PAIN
     Dosage: 125 MG ONCE DAILY PO
     Route: 048
     Dates: start: 20081201, end: 20090409
  2. TRAMADOL HCL [Suspect]
     Indication: PAIN
     Dosage: 100 MG TOOK ONE DOSE PO
     Route: 048
     Dates: start: 20090409, end: 20090409

REACTIONS (2)
  - ACCIDENTAL OVERDOSE [None]
  - CONVULSION [None]
